FAERS Safety Report 25325098 (Version 1)
Quarter: 2025Q2

REPORT INFORMATION
  Report Type: Spontaneous
  Country: US (occurrence: None)
  Receive Date: 20250516
  Receipt Date: 20250516
  Transmission Date: 20250716
  Serious: No
  Sender: FDA-CTU
  Company Number: None

PATIENT
  Age: 55 Year
  Sex: Female

DRUGS (1)
  1. REPATHA [Suspect]
     Active Substance: EVOLOCUMAB
     Indication: Hypercholesterolaemia
     Route: 058

REACTIONS (4)
  - Neck pain [None]
  - Myalgia [None]
  - Migraine [None]
  - Product formulation issue [None]

NARRATIVE: CASE EVENT DATE: 20250201
